FAERS Safety Report 17980039 (Version 2)
Quarter: 2023Q2

REPORT INFORMATION
  Report Type: Spontaneous
  Country: US (occurrence: US)
  Receive Date: 20200703
  Receipt Date: 20230612
  Transmission Date: 20230722
  Serious: Yes (Death, Other)
  Sender: FDA-Public Use
  Company Number: US-NAPPMUNDI-USA-2020-0155594

PATIENT
  Sex: Male

DRUGS (1)
  1. OXYCONTIN [Suspect]
     Active Substance: OXYCODONE HYDROCHLORIDE
     Indication: Product used for unknown indication
     Dosage: UNK
     Route: 048
     Dates: start: 199711

REACTIONS (11)
  - Completed suicide [Fatal]
  - Drug dependence [Unknown]
  - Renal cancer [Unknown]
  - Cardiac failure [Unknown]
  - Suicidal behaviour [Unknown]
  - Organ failure [Unknown]
  - Mood swings [Unknown]
  - Panic attack [Unknown]
  - Gait disturbance [Unknown]
  - Muscle atrophy [Unknown]
  - Abdominal discomfort [Unknown]
